FAERS Safety Report 5235663-4 (Version None)
Quarter: 2007Q1

REPORT INFORMATION
  Report Type: 
  Country: None (occurrence: None)
  Receive Date: 20070212
  Receipt Date: 20070206
  Transmission Date: 20070707
  Serious: Yes (Hospitalization)
  Sender: FDA-Public Use
  Company Number: JP-JPN-A200602076

PATIENT
  Age: 39 Year
  Sex: Male

DRUGS (19)
  1. LEXIVA [Suspect]
     Indication: ACQUIRED IMMUNODEFICIENCY SYNDROME
     Dosage: 700MG TWICE PER DAY
     Route: 048
     Dates: start: 20060220
  2. NORVIR [Suspect]
     Indication: ACQUIRED IMMUNODEFICIENCY SYNDROME
     Dosage: 200MG PER DAY
     Route: 048
     Dates: start: 20060314
  3. REYATAZ [Suspect]
     Indication: ACQUIRED IMMUNODEFICIENCY SYNDROME
     Dosage: 400MG PER DAY
     Route: 048
     Dates: start: 20060220
  4. VIREAD [Suspect]
     Indication: ACQUIRED IMMUNODEFICIENCY SYNDROME
     Dosage: 300MG PER DAY
     Route: 048
     Dates: start: 20060220
  5. EPZICOM [Suspect]
     Indication: ACQUIRED IMMUNODEFICIENCY SYNDROME
     Route: 048
     Dates: start: 20050523, end: 20060211
  6. RETROVIR [Concomitant]
     Indication: ACQUIRED IMMUNODEFICIENCY SYNDROME
     Dosage: 400MG PER DAY
     Route: 048
     Dates: start: 20060220, end: 20060227
  7. EPIVIR [Concomitant]
     Indication: ACQUIRED IMMUNODEFICIENCY SYNDROME
     Dosage: 150MG TWICE PER DAY
     Route: 048
     Dates: start: 20060220
  8. ZERIT [Concomitant]
     Indication: ACQUIRED IMMUNODEFICIENCY SYNDROME
     Dosage: 80MG PER DAY
     Route: 048
     Dates: start: 20060228
  9. VIRACEPT [Concomitant]
     Indication: ACQUIRED IMMUNODEFICIENCY SYNDROME
     Dosage: 2500MG PER DAY
     Route: 048
     Dates: start: 20050523, end: 20060205
  10. INVIRASE [Concomitant]
     Indication: ACQUIRED IMMUNODEFICIENCY SYNDROME
     Dosage: 2000MG PER DAY
     Route: 048
     Dates: start: 20060206, end: 20060219
  11. NORVIR [Concomitant]
     Indication: ACQUIRED IMMUNODEFICIENCY SYNDROME
     Dosage: 192MG PER DAY
     Route: 048
     Dates: start: 20060220, end: 20060313
  12. STOCRIN [Concomitant]
     Indication: ACQUIRED IMMUNODEFICIENCY SYNDROME
     Dosage: 600MG PER DAY
     Route: 048
     Dates: start: 20060206, end: 20060219
  13. KALETRA [Concomitant]
     Indication: ACQUIRED IMMUNODEFICIENCY SYNDROME
     Dosage: 14ML PER DAY
     Route: 048
     Dates: start: 20060206, end: 20060219
  14. ZITHROMAC [Concomitant]
     Indication: MYCOBACTERIUM AVIUM COMPLEX INFECTION
     Dosage: 600MG PER DAY
     Route: 048
     Dates: start: 20060217, end: 20060228
  15. ESANBUTOL [Concomitant]
     Indication: MYCOBACTERIUM AVIUM COMPLEX INFECTION
     Dosage: 750MG PER DAY
     Route: 048
     Dates: start: 20060217
  16. LEVOFLOXACIN [Concomitant]
     Indication: MYCOBACTERIUM AVIUM COMPLEX INFECTION
     Route: 048
     Dates: start: 20060217, end: 20060306
  17. ISCOTIN [Concomitant]
     Indication: MYCOBACTERIUM AVIUM COMPLEX INFECTION
     Dosage: 300MG PER DAY
     Route: 048
     Dates: start: 20060307
  18. PYRIDOXAL PHOSPHATE [Concomitant]
     Indication: MYCOBACTERIUM AVIUM COMPLEX INFECTION
     Dosage: 60MG PER DAY
     Route: 048
     Dates: start: 20060307
  19. UNKNOWN MEDICATION [Concomitant]
     Indication: MYCOBACTERIUM AVIUM COMPLEX INFECTION
     Dosage: 150MG PER DAY
     Route: 065
     Dates: start: 20060218

REACTIONS (2)
  - HYPERBILIRUBINAEMIA [None]
  - PYREXIA [None]
